FAERS Safety Report 12203454 (Version 14)
Quarter: 2018Q1

REPORT INFORMATION
  Report Type: Report from Study
  Country: CR (occurrence: CR)
  Receive Date: 20160323
  Receipt Date: 20180111
  Transmission Date: 20180508
  Serious: Yes (Other)
  Sender: FDA-Public Use
  Company Number: PHHY2016CR037490

PATIENT
  Sex: Female
  Weight: 59 kg

DRUGS (8)
  1. LEVOTHYROXINE. [Concomitant]
     Active Substance: LEVOTHYROXINE
     Indication: PRODUCT USED FOR UNKNOWN INDICATION
     Dosage: 100 UG, QD
     Route: 048
  2. SANDOSTATIN LAR DEPOT [Suspect]
     Active Substance: OCTREOTIDE ACETATE
     Dosage: 30 MG, UNK
     Route: 065
  3. SANDOSTATIN LAR DEPOT [Suspect]
     Active Substance: OCTREOTIDE ACETATE
     Indication: PITUITARY TUMOUR
     Dosage: 20 MG, QMO (EVERY 28 DAYS)
     Route: 030
     Dates: start: 201511
  4. BROMOPIRIN [Concomitant]
     Indication: PRODUCT USED FOR UNKNOWN INDICATION
     Dosage: 2.5 MG, Q8H
     Route: 065
  5. SULINDAC. [Concomitant]
     Active Substance: SULINDAC
     Indication: PRODUCT USED FOR UNKNOWN INDICATION
     Dosage: UNK, PRN
     Route: 065
  6. SANDOSTATIN LAR DEPOT [Suspect]
     Active Substance: OCTREOTIDE ACETATE
     Indication: ACROMEGALY
     Dosage: 20 MG, QMO (EVERY 28 DAYS)
     Route: 030
  7. SANDOSTATIN LAR DEPOT [Suspect]
     Active Substance: OCTREOTIDE ACETATE
     Dosage: 20 MG, QMO (EVERY 28 DAYS)
     Route: 030
  8. CORTISON [Concomitant]
     Active Substance: CORTISONE ACETATE
     Indication: PRODUCT USED FOR UNKNOWN INDICATION
     Dosage: 20 MG, (3/4 IN THE MORNING AND 1/4 IN THE AFTERNOON)
     Route: 048

REACTIONS (28)
  - Gastrointestinal inflammation [Unknown]
  - Musculoskeletal pain [Unknown]
  - Constipation [Recovering/Resolving]
  - Adnexa uteri pain [Unknown]
  - Gastrointestinal pain [Recovering/Resolving]
  - Laboratory test abnormal [Unknown]
  - Gastrointestinal bacterial overgrowth [Unknown]
  - Colitis [Not Recovered/Not Resolved]
  - Diarrhoea [Unknown]
  - Gastrointestinal disorder [Unknown]
  - Injection site haemorrhage [Unknown]
  - Diarrhoea [Recovered/Resolved]
  - Visual acuity reduced [Unknown]
  - Weight decreased [Unknown]
  - Hypersensitivity [Unknown]
  - Flatulence [Recovering/Resolving]
  - Helicobacter test positive [Unknown]
  - Blood glucose increased [Unknown]
  - Neoplasm progression [Unknown]
  - Malaise [Recovering/Resolving]
  - Abdominal pain [Unknown]
  - Abdominal discomfort [Unknown]
  - Hormone level abnormal [Unknown]
  - Immune system disorder [Unknown]
  - Chronic gastritis [Unknown]
  - Diabetes mellitus [Unknown]
  - Ileus paralytic [Recovering/Resolving]
  - Anxiety [Unknown]

NARRATIVE: CASE EVENT DATE: 2017
